FAERS Safety Report 13161242 (Version 1)
Quarter: 2017Q1

REPORT INFORMATION
  Report Type: Spontaneous
  Country: US (occurrence: US)
  Receive Date: 20170130
  Receipt Date: 20170130
  Transmission Date: 20170428
  Serious: No
  Sender: FDA-Public Use
  Company Number: US-TEVA-727787ACC

PATIENT
  Sex: Female

DRUGS (1)
  1. PLAN B ONE-STEP [Suspect]
     Active Substance: LEVONORGESTREL
     Indication: POST COITAL CONTRACEPTION
     Dates: start: 20161225, end: 20161225

REACTIONS (4)
  - Vomiting [Unknown]
  - Abdominal pain [Not Recovered/Not Resolved]
  - Vaginal haemorrhage [Unknown]
  - Dizziness [Not Recovered/Not Resolved]
